FAERS Safety Report 17048454 (Version 1)
Quarter: 2019Q4

REPORT INFORMATION
  Report Type: Spontaneous
  Country: US (occurrence: US)
  Receive Date: 20191119
  Receipt Date: 20191119
  Transmission Date: 20200122
  Serious: No
  Sender: FDA-Public Use
  Company Number: US-PFIZER INC-2019497304

PATIENT
  Age: 64 Year
  Sex: Male

DRUGS (1)
  1. METOPROLOL TARTRATE. [Suspect]
     Active Substance: METOPROLOL TARTRATE

REACTIONS (1)
  - Cough [Unknown]
